FAERS Safety Report 16148887 (Version 3)
Quarter: 2022Q4

REPORT INFORMATION
  Report Type: Spontaneous
  Country: JP (occurrence: JP)
  Receive Date: 20190402
  Receipt Date: 20221114
  Transmission Date: 20230112
  Serious: Yes (Disabling)
  Sender: FDA-Public Use
  Company Number: JP-ALLERGAN-1914291US

PATIENT
  Sex: Female

DRUGS (4)
  1. ALPHAGAN P [Suspect]
     Active Substance: BRIMONIDINE TARTRATE
     Indication: Glaucoma
     Dosage: ACTUAL: DAILY DOSE REPORTED AS 2 DROP
     Route: 047
  2. TIMOLOL MALEATE\TRAVOPROST [Concomitant]
     Active Substance: TIMOLOL MALEATE\TRAVOPROST
     Indication: Glaucoma
     Dosage: QD, ADEQUATE DOSE
     Route: 047
  3. HYALURONATE SODIUM [Concomitant]
     Active Substance: HYALURONATE SODIUM
     Indication: Corneal disorder
     Dosage: ADEQUATE DOSE AS NEEDED
     Route: 047
     Dates: end: 20160208
  4. PIRENOXINE [Concomitant]
     Active Substance: PIRENOXINE
     Indication: Cataract
     Dosage: QID, ADEQUATE DOSE
     Route: 047
     Dates: end: 20160208

REACTIONS (1)
  - Corneal opacity [Recovering/Resolving]
